FAERS Safety Report 9969351 (Version 2)
Quarter: 2014Q2

REPORT INFORMATION
  Report Type: Spontaneous
  Country: US (occurrence: US)
  Receive Date: 20140306
  Receipt Date: 20140414
  Transmission Date: 20141212
  Serious: No
  Sender: FDA-Public Use
  Company Number: US-BIOGENIDEC-2014BI018610

PATIENT
  Age: 60 Year
  Sex: Female

DRUGS (8)
  1. TECFIDERA [Suspect]
     Indication: MULTIPLE SCLEROSIS
     Route: 048
  2. ADDERALL XR [Concomitant]
  3. ADVAIR HFA [Concomitant]
  4. ALPRAZOLAM [Concomitant]
  5. HYDROCODONE-ACETAMINOPHEN [Concomitant]
  6. PROAIR HFA [Concomitant]
  7. SIMVASTATIN [Concomitant]
  8. SPIRIVA HANDIHALER [Concomitant]

REACTIONS (2)
  - Alopecia [Not Recovered/Not Resolved]
  - Flushing [Unknown]
